FAERS Safety Report 7049563-0 (Version None)
Quarter: 2010Q4

REPORT INFORMATION
  Report Type: 
  Country: None (occurrence: None)
  Receive Date: 20101013
  Receipt Date: 20101001
  Transmission Date: 20110411
  Serious: Yes (Hospitalization, Other)
  Sender: FDA-Public Use
  Company Number: 2010SP053070

PATIENT
  Age: 15 Year
  Sex: Female
  Weight: 51.2565 kg

DRUGS (5)
  1. MIRALAX [Suspect]
     Indication: INFREQUENT BOWEL MOVEMENTS
     Dosage: PO
     Route: 048
     Dates: start: 20100829
  2. MIRALAX [Suspect]
     Indication: PAIN
     Dosage: PO
     Route: 048
     Dates: start: 20100829
  3. HUMIRA [Suspect]
     Indication: CROHN'S DISEASE
     Dates: start: 20100712
  4. MULTI-VITAMINS [Concomitant]
  5. REMICADE [Concomitant]

REACTIONS (7)
  - ABDOMINAL PAIN UPPER [None]
  - FREQUENT BOWEL MOVEMENTS [None]
  - GASTROINTESTINAL INFLAMMATION [None]
  - HEPATIC ENZYME ABNORMAL [None]
  - INFREQUENT BOWEL MOVEMENTS [None]
  - OVARIAN CYST RUPTURED [None]
  - WHITE BLOOD CELL COUNT INCREASED [None]
